FAERS Safety Report 24194689 (Version 1)
Quarter: 2024Q3

REPORT INFORMATION
  Report Type: Spontaneous
  Country: ZA (occurrence: ZA)
  Receive Date: 20240809
  Receipt Date: 20240809
  Transmission Date: 20241016
  Serious: Yes (Other)
  Sender: BAYER
  Company Number: ZA-BAYER-2024A114628

PATIENT
  Age: 64 Year
  Sex: Female

DRUGS (1)
  1. GADOBUTROL [Suspect]
     Active Substance: GADOBUTROL
     Dosage: UNK, ONCE
     Dates: start: 20240808, end: 20240808

REACTIONS (3)
  - Eye swelling [None]
  - Throat irritation [None]
  - Swollen tongue [None]

NARRATIVE: CASE EVENT DATE: 20240808
